FAERS Safety Report 5926069-0 (Version None)
Quarter: 2008Q4

REPORT INFORMATION
  Report Type: 
  Country: None (occurrence: None)
  Receive Date: 20081016
  Receipt Date: 20081001
  Transmission Date: 20090506
  Serious: Yes (Other)
  Sender: FDA-Public Use
  Company Number: 2008S1017825

PATIENT
  Age: 50 Year
  Sex: Male

DRUGS (11)
  1. DIHYDROCODEINE BITARTRATE INJ [Suspect]
     Indication: DRUG USE FOR UNKNOWN INDICATION
  2. FLUOXETINE [Suspect]
     Indication: DRUG USE FOR UNKNOWN INDICATION
     Dosage: 40 MG;
  3. OXYCONTIN [Suspect]
     Indication: PAIN
     Dosage: 80 MG, TWICE A DAY;
     Dates: start: 20061201
  4. OXYCODONE HCL [Suspect]
     Indication: PAIN
     Dosage: 5, AS NEEDED
     Dates: start: 20061201
  5. CALCICHEW [Concomitant]
  6. ETORICOXIB [Concomitant]
  7. BONIVA [Concomitant]
  8. ISPAGHULA [Concomitant]
  9. OMEPRAZOLE [Concomitant]
  10. PREDNISOLONE [Concomitant]
  11. SENNA [Concomitant]

REACTIONS (5)
  - CONSTIPATION [None]
  - DRUG DEPENDENCE [None]
  - DRUG INEFFECTIVE [None]
  - DRUG INTERACTION [None]
  - HYPERHIDROSIS [None]
